FAERS Safety Report 4561247-7 (Version None)
Quarter: 2005Q1

REPORT INFORMATION
  Report Type: 
  Country: None (occurrence: None)
  Receive Date: 20050121
  Receipt Date: 20050107
  Transmission Date: 20050727
  Serious: Yes (Death)
  Sender: FDA-Public Use
  Company Number: 2005-BP-00256RO

PATIENT

DRUGS (15)
  1. METHOTREXATE [Suspect]
     Indication: ANKYLOSING SPONDYLITIS
  2. METHOTREXATE [Suspect]
     Indication: ARTHRITIS
  3. METHOTREXATE [Suspect]
     Indication: JUVENILE ARTHRITIS
  4. METHOTREXATE [Suspect]
     Indication: MIXED CONNECTIVE TISSUE DISEASE
  5. METHOTREXATE [Suspect]
     Indication: POLYMYALGIA RHEUMATICA
  6. METHOTREXATE [Suspect]
     Indication: POLYMYOSITIS
  7. METHOTREXATE [Suspect]
     Indication: PSORIATIC ARTHROPATHY
  8. METHOTREXATE [Suspect]
     Indication: REITER'S SYNDROME
  9. METHOTREXATE [Suspect]
     Indication: RELAPSING POLYCHONDRITIS
  10. METHOTREXATE [Suspect]
     Indication: RHEUMATOID ARTHRITIS
  11. METHOTREXATE [Suspect]
     Indication: SCLERODERMA
  12. METHOTREXATE [Suspect]
     Indication: SJOGREN'S SYNDROME
  13. METHOTREXATE [Suspect]
     Indication: SYSTEMIC LUPUS ERYTHEMATOSUS
  14. METHOTREXATE [Suspect]
     Indication: TEMPORAL ARTERITIS
  15. METHOTREXATE [Suspect]
     Indication: VASCULITIS

REACTIONS (40)
  - ABDOMINAL PAIN [None]
  - ABSCESS [None]
  - ADVERSE DRUG REACTION [None]
  - ALOPECIA [None]
  - ASTHMA [None]
  - BRONCHIAL CARCINOMA [None]
  - BRONCHOPNEUMONIA [None]
  - CARDIAC FAILURE CONGESTIVE [None]
  - CARDIOGENIC SHOCK [None]
  - CELLULITIS [None]
  - DIARRHOEA [None]
  - DIVERTICULUM [None]
  - DYSPEPSIA [None]
  - DYSPNOEA [None]
  - EOSINOPHIL COUNT INCREASED [None]
  - GLOSSODYNIA [None]
  - HAEMATOLOGY TEST ABNORMAL [None]
  - HERPES ZOSTER [None]
  - INFECTION [None]
  - LEFT VENTRICULAR FAILURE [None]
  - LIVER FUNCTION TEST ABNORMAL [None]
  - LOWER RESPIRATORY TRACT INFECTION [None]
  - MOUTH ULCERATION [None]
  - MYOCARDIAL INFARCTION [None]
  - MYOCARDIAL ISCHAEMIA [None]
  - NAUSEA [None]
  - NODULE [None]
  - ORAL PAIN [None]
  - PANCREATIC CARCINOMA [None]
  - PANCYTOPENIA [None]
  - PLEURAL EFFUSION [None]
  - PNEUMONITIS [None]
  - PRURITUS [None]
  - PULMONARY FIBROSIS [None]
  - PULMONARY OEDEMA [None]
  - RASH [None]
  - RENAL FAILURE CHRONIC [None]
  - RHEUMATOID ARTHRITIS [None]
  - SEPSIS [None]
  - VOMITING [None]
